FAERS Safety Report 8707640 (Version 2)
Quarter: 2012Q4

REPORT INFORMATION
  Report Type: 
  Country: AU (occurrence: AU)
  Receive Date: 20120806
  Receipt Date: 20121115
  Transmission Date: 20130627
  Serious: Yes (Hospitalization)
  Sender: FDA-Public Use
  Company Number: AU-AMGEN-AUSSP2012048263

PATIENT
  Age: 61 Year
  Sex: Male

DRUGS (5)
  1. XGEVA [Suspect]
     Indication: PROSTATE CANCER
     Dosage: UNK
     Dates: start: 201201
  2. DOCETAXEL [Concomitant]
     Indication: PROSTATE CANCER
     Dosage: UNK
     Dates: end: 201205
  3. PREDNISOLONE [Concomitant]
     Indication: PROSTATE CANCER
  4. ZOLADEX                            /00732101/ [Concomitant]
     Indication: PROSTATE CANCER
  5. CABAZITAXEL [Concomitant]
     Indication: PROSTATE CANCER
     Dosage: UNK
     Dates: start: 201205

REACTIONS (1)
  - Cellulitis [Recovered/Resolved]
